FAERS Safety Report 7800854-2 (Version None)
Quarter: 2011Q4

REPORT INFORMATION
  Report Type: 
  Country: None (occurrence: None)
  Receive Date: 20111006
  Receipt Date: 20110930
  Transmission Date: 20120403
  Serious: Yes (Other)
  Sender: FDA-Public Use
  Company Number: US-AMGEN-USASP2011050766

PATIENT
  Sex: Female

DRUGS (1)
  1. ENBREL [Suspect]
     Indication: RHEUMATOID ARTHRITIS
     Dosage: UNK
     Dates: start: 20110301

REACTIONS (11)
  - MALAISE [None]
  - DEPRESSED MOOD [None]
  - HYPERTENSION [None]
  - PAIN IN EXTREMITY [None]
  - NERVOUSNESS [None]
  - PAIN [None]
  - DRUG EFFECT DECREASED [None]
  - RHEUMATOID ARTHRITIS [None]
  - PYREXIA [None]
  - OEDEMA PERIPHERAL [None]
  - JOINT RANGE OF MOTION DECREASED [None]
